FAERS Safety Report 6349811-6 (Version None)
Quarter: 2009Q3

REPORT INFORMATION
  Report Type: 
  Country: None (occurrence: None)
  Receive Date: 20090911
  Receipt Date: 20090902
  Transmission Date: 20100115
  Serious: Yes (Hospitalization, Other)
  Sender: FDA-Public Use
  Company Number: US-MERCK-0907USA01634

PATIENT
  Age: 48 Year
  Sex: Female
  Weight: 60 kg

DRUGS (6)
  1. FOSAMAX [Suspect]
     Indication: MULTIPLE MYELOMA
     Route: 048
     Dates: start: 19960101
  2. PREMPRO [Concomitant]
     Indication: HORMONE REPLACEMENT THERAPY
     Route: 065
  3. SYNTHROID [Concomitant]
     Indication: HYPOTHYROIDISM
     Route: 065
  4. ALLEGRA [Concomitant]
     Indication: SEASONAL ALLERGY
     Route: 065
  5. ZOMETA [Suspect]
     Route: 065
  6. PAMIDRONATE DISODIUM [Suspect]
     Route: 065

REACTIONS (17)
  - ACUTE GRAFT VERSUS HOST DISEASE IN LIVER [None]
  - BONE LESION [None]
  - BREAST CANCER STAGE I [None]
  - CELLULITIS [None]
  - CYTOMEGALOVIRUS INFECTION [None]
  - FEMORAL NECK FRACTURE [None]
  - FOOT FRACTURE [None]
  - GINGIVAL BLEEDING [None]
  - HERPES ZOSTER DISSEMINATED [None]
  - MULTIPLE MYELOMA [None]
  - ORAL TORUS [None]
  - OSTEOLYSIS [None]
  - OSTEOMYELITIS [None]
  - OSTEONECROSIS [None]
  - PRURITUS [None]
  - PYREXIA [None]
  - WEIGHT DECREASED [None]
